FAERS Safety Report 6527038-2 (Version None)
Quarter: 2009Q4

REPORT INFORMATION
  Report Type: 
  Country: None (occurrence: None)
  Receive Date: 20091218
  Receipt Date: 20090820
  Transmission Date: 20100525
  Serious: No
  Sender: FDA-Public Use
  Company Number: 007331

PATIENT
  Sex: Female
  Weight: 64.9 kg

DRUGS (5)
  1. SAMSCA [Suspect]
     Indication: BLOOD SODIUM DECREASED
  2. COUMADIN [Concomitant]
  3. LASIX [Concomitant]
  4. NITROGLYCERIN TRANSDERMAL SYSTEM (GLYCERYL TRINITRATE) [Concomitant]
  5. ANTI-HYPERTENSIVE [Concomitant]

REACTIONS (4)
  - BLOOD SODIUM DECREASED [None]
  - FLUID RETENTION [None]
  - OEDEMA PERIPHERAL [None]
  - OXYGEN SATURATION DECREASED [None]
